FAERS Safety Report 18598436 (Version 1)
Quarter: 2020Q4

REPORT INFORMATION
  Report Type: Spontaneous
  Country: CN (occurrence: CN)
  Receive Date: 20201210
  Receipt Date: 20201210
  Transmission Date: 20210114
  Serious: Yes (Other)
  Sender: FDA-Public Use
  Company Number: CN-009507513-2012CHN002315

PATIENT
  Age: 68 Year
  Sex: Male
  Weight: 45 kg

DRUGS (2)
  1. SODIUM CHLORIDE. [Concomitant]
     Active Substance: SODIUM CHLORIDE
     Dosage: 100 MILLILITER, Q8H (ALSO REPORTED AS TID (THREE TIMES PER DAY))
     Route: 041
     Dates: start: 20201118, end: 20201123
  2. TIENAM [Suspect]
     Active Substance: CILASTATIN SODIUM\IMIPENEM
     Indication: SEPSIS
     Dosage: 2 GRAM, Q8H (ALSO REPORTED AS TID (THREE TIMES PER DAY))
     Route: 041
     Dates: start: 20201118, end: 20201123

REACTIONS (1)
  - Hypoacusis [Unknown]

NARRATIVE: CASE EVENT DATE: 20201123
